FAERS Safety Report 16625862 (Version 1)
Quarter: 2019Q3

REPORT INFORMATION
  Report Type: Spontaneous
  Country: US (occurrence: US)
  Receive Date: 20190724
  Receipt Date: 20190724
  Transmission Date: 20191004
  Serious: Yes (Hospitalization)
  Sender: FDA-Public Use
  Company Number: US-PARI RESPIRATORY EQUIPMENT, INC.-2019PAR00066

PATIENT
  Age: 27 Year
  Sex: Male

DRUGS (3)
  1. SYMDEKO [Suspect]
     Active Substance: IVACAFTOR\TEZACAFTOR
  2. PULMOZYME [Concomitant]
     Active Substance: DORNASE ALFA
     Dosage: UNK
  3. KITABIS PAK [Suspect]
     Active Substance: TOBRAMYCIN
     Indication: CYSTIC FIBROSIS
     Dosage: 300 MG, 2X/DAY (28 DAYS ON AND 28 DAYS OFF)
     Dates: start: 20180501

REACTIONS (2)
  - Chest discomfort [Unknown]
  - Antibiotic therapy [Unknown]

NARRATIVE: CASE EVENT DATE: 20190629
